FAERS Safety Report 4771095-0 (Version None)
Quarter: 2005Q3

REPORT INFORMATION
  Report Type: 
  Country: None (occurrence: None)
  Receive Date: 20050914
  Receipt Date: 20050902
  Transmission Date: 20060218
  Serious: Yes (Hospitalization, Disabling, Other)
  Sender: FDA-Public Use
  Company Number: 2005124715

PATIENT
  Age: 58 Year
  Sex: Female
  Weight: 97.0698 kg

DRUGS (6)
  1. GLIPIZIDE [Suspect]
     Indication: DIABETES MELLITUS
     Dosage: 2.5 MG (2.5  MG, 1 IN 1D)
     Dates: start: 19980101
  2. PREDNISONE [Suspect]
     Indication: COLITIS ULCERATIVE
     Dosage: 60 MG (1 IN 1 D)
     Dates: start: 20050117
  3. ASCOL (MESALAZINE) [Concomitant]
  4. PRILOSEC [Concomitant]
  5. FUROSEMIDE [Concomitant]
  6. MERCAPTOPURINE [Concomitant]

REACTIONS (5)
  - ARTHRITIS [None]
  - BLOOD GLUCOSE INCREASED [None]
  - BLOOD POTASSIUM DECREASED [None]
  - CHEST PAIN [None]
  - COLITIS ULCERATIVE [None]
